FAERS Safety Report 20707436 (Version 1)
Quarter: 2022Q2

REPORT INFORMATION
  Report Type: Spontaneous
  Country: US (occurrence: US)
  Receive Date: 20220413
  Receipt Date: 20220413
  Transmission Date: 20220721
  Serious: No
  Sender: FDA-Public Use
  Company Number: US-PFIZER INC-2021777730

PATIENT
  Age: 67 Year
  Sex: Male
  Weight: 89.206 kg

DRUGS (2)
  1. BOSULIF [Suspect]
     Active Substance: BOSUTINIB MONOHYDRATE
     Dosage: 400 MG, 1X/DAY, WITH FOOD
     Dates: start: 20210519, end: 20210617
  2. MUPIROCIN [Concomitant]
     Active Substance: MUPIROCIN

REACTIONS (6)
  - Rash [Recovering/Resolving]
  - Blood urea increased [Recovered/Resolved]
  - Blood creatinine increased [Recovering/Resolving]
  - Blood potassium increased [Recovered/Resolved]
  - Dehydration [Unknown]
  - Pruritus [Recovering/Resolving]

NARRATIVE: CASE EVENT DATE: 20210612
